FAERS Safety Report 19775376 (Version 4)
Quarter: 2021Q4

REPORT INFORMATION
  Report Type: Report from Study
  Country: US (occurrence: US)
  Receive Date: 20210901
  Receipt Date: 20211211
  Transmission Date: 20220303
  Serious: Yes (Other)
  Sender: FDA-Public Use
  Company Number: US-NOVARTISPH-NVSC2021US193931

PATIENT
  Age: 54 Year
  Sex: Male

DRUGS (5)
  1. ENTRESTO [Suspect]
     Active Substance: SACUBITRIL\VALSARTAN
     Indication: Cardiac failure
     Dosage: 24.26 MG, BID
     Route: 048
     Dates: start: 20210606
  2. ENTRESTO [Suspect]
     Active Substance: SACUBITRIL\VALSARTAN
     Dosage: 49.51 MG, BID
     Route: 065
  3. CARVEDILOL [Suspect]
     Active Substance: CARVEDILOL
     Indication: Cardiac failure
     Dosage: UNK, BID
     Route: 048
     Dates: start: 20210802
  4. SPIRONOLACTONE [Suspect]
     Active Substance: SPIRONOLACTONE
     Indication: Cardiac failure
     Dosage: 0.5 DF, QD
     Route: 048
     Dates: start: 20210802
  5. MELOXICAM [Concomitant]
     Active Substance: MELOXICAM
     Indication: Product used for unknown indication
     Dosage: 7.5 MG, BID (7.5 MG ONE TABLET TWICE A DAY FOR 10 DAYS.
     Route: 065
     Dates: start: 20211108

REACTIONS (6)
  - Ejection fraction decreased [Not Recovered/Not Resolved]
  - Sleep apnoea syndrome [Unknown]
  - Intervertebral disc protrusion [Unknown]
  - Arthralgia [Unknown]
  - Arthritis [Unknown]
  - Product dose omission issue [Unknown]

NARRATIVE: CASE EVENT DATE: 20210708
